FAERS Safety Report 24318662 (Version 1)
Quarter: 2024Q3

REPORT INFORMATION
  Report Type: Spontaneous
  Country: US (occurrence: US)
  Receive Date: 20240913
  Receipt Date: 20240913
  Transmission Date: 20241016
  Serious: Yes (Hospitalization)
  Sender: SANOFI AVENTIS
  Company Number: US-SA-2024SA265160

PATIENT
  Age: 34 Year
  Sex: Female

DRUGS (33)
  1. DUPIXENT [Suspect]
     Active Substance: DUPILUMAB
     Indication: Dermatitis atopic
     Dosage: 300 MG, FREQUENCY: OTHER
     Route: 058
     Dates: start: 20180131
  2. LABETALOL [Concomitant]
     Active Substance: LABETALOL\LABETALOL HYDROCHLORIDE
     Route: 047
  3. TRAZODONE [Concomitant]
     Active Substance: TRAZODONE HYDROCHLORIDE
     Dosage: UNK
  4. FORTEO [Concomitant]
     Active Substance: TERIPARATIDE
     Route: 047
  5. TOBRAMYCIN [Concomitant]
     Active Substance: TOBRAMYCIN\TOBRAMYCIN SULFATE
  6. POLYTRIM [Concomitant]
     Active Substance: POLYMYXIN B SULFATE\TRIMETHOPRIM SULFATE
     Dosage: UNK
  7. MUPIROCIN [Concomitant]
     Active Substance: MUPIROCIN
     Dosage: UNK
  8. SERTRALINE [Concomitant]
     Active Substance: SERTRALINE HYDROCHLORIDE
     Dosage: UNK
  9. TOBRADEX [Concomitant]
     Active Substance: DEXAMETHASONE\TOBRAMYCIN
     Dosage: UNK
  10. MYCOPHENOLIC ACID [Concomitant]
     Active Substance: MYCOPHENOLIC ACID
  11. TACROLIMUS [Concomitant]
     Active Substance: TACROLIMUS
  12. PREDNISONE [Concomitant]
     Active Substance: PREDNISONE
  13. TRIANEX [Concomitant]
     Active Substance: TRIAMCINOLONE ACETONIDE
  14. CETIRIZINE [Concomitant]
     Active Substance: CETIRIZINE HYDROCHLORIDE
  15. EUCRISA [Concomitant]
     Active Substance: CRISABOROLE
  16. POTASSIUM [Concomitant]
     Active Substance: POTASSIUM
  17. FLUOXETINE [Concomitant]
     Active Substance: FLUOXETINE HYDROCHLORIDE
  18. WELLBUTRIN [Concomitant]
     Active Substance: BUPROPION HYDROCHLORIDE
  19. FIBER THERAPY (CALCIUM POLYCARBOPHIL) [Concomitant]
     Active Substance: CALCIUM POLYCARBOPHIL
     Dosage: UNK
  20. ERYTHROMYCIN [Concomitant]
     Active Substance: ERYTHROMYCIN
  21. ADDERALL [Concomitant]
     Active Substance: AMPHETAMINE ASPARTATE\AMPHETAMINE SULFATE\DEXTROAMPHETAMINE SACCHARATE\DEXTROAMPHETAMINE SULFATE
     Dosage: UNK
  22. AZITHROMYCIN [Concomitant]
     Active Substance: AZITHROMYCIN
  23. VENTOLIN [Concomitant]
     Active Substance: ALBUTEROL SULFATE
  24. FML FORTE [Concomitant]
     Active Substance: FLUOROMETHOLONE
     Route: 047
  25. NORCO [Concomitant]
     Active Substance: ACETAMINOPHEN\HYDROCODONE BITARTRATE
  26. HYOSCYAMINE [Concomitant]
     Active Substance: HYOSCYAMINE
     Dosage: UNK
  27. MONTELUKAST [Concomitant]
     Active Substance: MONTELUKAST SODIUM
  28. ESCITALOPRAM [Concomitant]
     Active Substance: ESCITALOPRAM OXALATE
  29. CLARITIN [Concomitant]
     Active Substance: LORATADINE
  30. RESTASIS [Concomitant]
     Active Substance: CYCLOSPORINE
  31. ALREX [Concomitant]
     Active Substance: LOTEPREDNOL ETABONATE
  32. BUPROPION [Concomitant]
     Active Substance: BUPROPION
  33. BACITRACIN;NEOMYCIN;POLYMYXIN [Concomitant]
     Dosage: UNK

REACTIONS (1)
  - Maternal exposure during pregnancy [Unknown]
